FAERS Safety Report 9863229 (Version 1)
Quarter: 2014Q1

REPORT INFORMATION
  Report Type: Report from Study
  Country: US (occurrence: US)
  Receive Date: 20140203
  Receipt Date: 20140203
  Transmission Date: 20141002
  Serious: Yes (Other)
  Sender: FDA-Public Use
  Company Number: US-ROCHE-1338691

PATIENT
  Sex: Female

DRUGS (4)
  1. AVASTIN [Suspect]
     Indication: AGE-RELATED MACULAR DEGENERATION
     Route: 065
  2. AVASTIN [Suspect]
     Dosage: 6TH DOSE
     Route: 065
     Dates: start: 20110908
  3. BABY ASPIRIN [Concomitant]
  4. FISH OIL [Concomitant]

REACTIONS (10)
  - Ocular hyperaemia [Unknown]
  - Eye irritation [Unknown]
  - Eye pain [Unknown]
  - Hyperaesthesia [Unknown]
  - Abnormal sensation in eye [Unknown]
  - Vision blurred [Unknown]
  - Vitreous floaters [Unknown]
  - Ocular discomfort [Unknown]
  - Vitreous haemorrhage [Unknown]
  - Retinal degeneration [Unknown]
